FAERS Safety Report 15384325 (Version 2)
Quarter: 2018Q3

REPORT INFORMATION
  Report Type: Spontaneous
  Country: US (occurrence: US)
  Receive Date: 20180914
  Receipt Date: 20180924
  Transmission Date: 20181010
  Serious: No
  Sender: FDA-Public Use
  Company Number: US-BAUSCH-BL-2018-024962

PATIENT
  Age: 56 Year
  Sex: Female

DRUGS (1)
  1. LUMIFY [Suspect]
     Active Substance: BRIMONIDINE TARTRATE
     Indication: OCULAR HYPERAEMIA
     Dosage: ONE TO TWO DROPS IN EACH EYE NOT MORE THAN EIGHT HOURS IN BETWEEN APPLICATIONS
     Route: 047
     Dates: start: 201808, end: 20180905

REACTIONS (2)
  - Scleral discolouration [Recovered/Resolved]
  - Blepharospasm [Recovering/Resolving]

NARRATIVE: CASE EVENT DATE: 201808
